FAERS Safety Report 21905158 (Version 2)
Quarter: 2023Q1

REPORT INFORMATION
  Report Type: Spontaneous
  Country: US (occurrence: US)
  Receive Date: 20230124
  Receipt Date: 20230210
  Transmission Date: 20230417
  Serious: Yes (Death, Hospitalization)
  Sender: FDA-Public Use
  Company Number: US-TEVA-2023-US-2847742

PATIENT
  Age: 60 Year
  Sex: Male

DRUGS (13)
  1. HYDROCORTISONE [Suspect]
     Active Substance: HYDROCORTISONE
     Indication: Cutaneous T-cell lymphoma
     Dosage: HYDROCORTISONE: 2.50 %
     Route: 061
     Dates: start: 201908
  2. NAPROXEN [Suspect]
     Active Substance: NAPROXEN
     Indication: Cutaneous T-cell lymphoma
     Dosage: 1000 MILLIGRAM DAILY; 500MG TWICE DAILY
     Route: 065
     Dates: start: 201908
  3. PREDNISONE [Suspect]
     Active Substance: PREDNISONE
     Indication: Cutaneous T-cell lymphoma
     Dosage: IN TAPERING DOSE , 40 MG
     Route: 048
     Dates: start: 201908
  4. TRIAMCINOLONE [Suspect]
     Active Substance: TRIAMCINOLONE
     Indication: Cutaneous T-cell lymphoma
     Dosage: TRIAMCINOLONE: 0.50 %
     Route: 061
     Dates: start: 2019
  5. HYDROXYZINE [Suspect]
     Active Substance: HYDROXYZINE HYDROCHLORIDE
     Indication: Cutaneous T-cell lymphoma
     Dosage: 30 MILLIGRAM DAILY; THREE TIMES DAILY
     Route: 065
     Dates: start: 2019
  6. CLOBETASOL [Suspect]
     Active Substance: CLOBETASOL
     Indication: Cutaneous T-cell lymphoma
     Dosage: CLOBETASOL: 0.05 %
     Route: 065
     Dates: start: 202004
  7. BEXAROTENE [Suspect]
     Active Substance: BEXAROTENE
     Indication: Cutaneous T-cell lymphoma
     Dosage: 200 MG/M2
     Route: 065
     Dates: start: 202004
  8. ROMIDEPSIN [Suspect]
     Active Substance: ROMIDEPSIN
     Indication: Cutaneous T-cell lymphoma
     Dosage: ON DAYS 1, 8, AND 15 OF A 28-DAY TREATMENT CYCLE WAS INITIATED , 14 MG/M2
     Route: 065
  9. DESONIDE [Suspect]
     Active Substance: DESONIDE
     Indication: Cutaneous T-cell lymphoma
     Route: 065
     Dates: start: 202004
  10. CETIRIZINE [Suspect]
     Active Substance: CETIRIZINE HYDROCHLORIDE
     Indication: Cutaneous T-cell lymphoma
     Dosage: 10 MILLIGRAM DAILY;
     Route: 065
     Dates: start: 201908
  11. DOXEPIN [Concomitant]
     Active Substance: DOXEPIN
     Indication: Product used for unknown indication
     Dosage: DOXEPIN: 25 MG
     Route: 065
     Dates: start: 202002
  12. WARFARIN [Concomitant]
     Active Substance: WARFARIN
     Indication: Product used for unknown indication
     Dosage: WARFARIN: 1 MG
     Route: 065
     Dates: start: 202002
  13. GABAPENTIN [Concomitant]
     Active Substance: GABAPENTIN
     Indication: Product used for unknown indication
     Dosage: GABAPENTIN: 300 MG
     Route: 065
     Dates: start: 202004

REACTIONS (1)
  - Drug ineffective [Fatal]
